FAERS Safety Report 14028120 (Version 1)
Quarter: 2017Q4

REPORT INFORMATION
  Report Type: Report from Study
  Country: US (occurrence: US)
  Receive Date: 20171002
  Receipt Date: 20171002
  Transmission Date: 20180321
  Serious: Yes (Hospitalization, Other)
  Sender: FDA-Public Use
  Company Number: US-ROCHE-1995719

PATIENT

DRUGS (11)
  1. 5-FLUOROURACIL [Suspect]
     Active Substance: FLUOROURACIL
     Indication: COLORECTAL CANCER
     Route: 065
  2. IRINOTECAN [Suspect]
     Active Substance: IRINOTECAN
     Indication: COLORECTAL CANCER
     Route: 065
  3. MITOMYCIN C [Suspect]
     Active Substance: MITOMYCIN
     Indication: COLORECTAL CANCER
     Route: 033
  4. FLOXURIDINE. [Suspect]
     Active Substance: FLOXURIDINE
     Indication: COLORECTAL CANCER
     Route: 050
  5. PANITUMUMAB [Suspect]
     Active Substance: PANITUMUMAB
     Indication: COLORECTAL CANCER
     Route: 065
  6. BEVACIZUMAB. [Suspect]
     Active Substance: BEVACIZUMAB
     Indication: COLORECTAL CANCER
     Route: 065
  7. CAPECITABINE. [Suspect]
     Active Substance: CAPECITABINE
     Indication: COLORECTAL CANCER
     Route: 065
  8. CETUXIMAB. [Suspect]
     Active Substance: CETUXIMAB
     Indication: COLORECTAL CANCER
     Route: 065
  9. OXALIPLATIN. [Suspect]
     Active Substance: OXALIPLATIN
     Indication: COLORECTAL CANCER
     Route: 065
  10. FOLINIC ACID [Suspect]
     Active Substance: LEUCOVORIN
     Indication: COLORECTAL CANCER
     Route: 065
  11. REGORAFENIB [Suspect]
     Active Substance: REGORAFENIB
     Indication: COLORECTAL CANCER
     Route: 065

REACTIONS (30)
  - Hepatotoxicity [Unknown]
  - Mucosal inflammation [Unknown]
  - Enteritis [Unknown]
  - Sepsis [Unknown]
  - Diarrhoea [Unknown]
  - Peritonitis [Unknown]
  - Enterocutaneous fistula [Unknown]
  - Thrombocytopenia [Unknown]
  - Abdominal pain [Unknown]
  - Neuropathy peripheral [Unknown]
  - Folliculitis [Unknown]
  - Weight decreased [Unknown]
  - Disseminated intravascular coagulation [Unknown]
  - Hypotension [Unknown]
  - Pain [Unknown]
  - Urinary tract infection [Unknown]
  - Bone marrow failure [Unknown]
  - Neutropenia [Unknown]
  - Hypersensitivity [Unknown]
  - Intestinal obstruction [Unknown]
  - Palmar-plantar erythrodysaesthesia syndrome [Unknown]
  - Acne [Unknown]
  - Hypertension [Unknown]
  - Hyperbilirubinaemia [Unknown]
  - Renal failure [Unknown]
  - Peripheral sensory neuropathy [Unknown]
  - Fluid retention [Unknown]
  - Failure to thrive [Unknown]
  - Gastrointestinal fistula [Unknown]
  - Bursitis [Unknown]
